FAERS Safety Report 4642507-8 (Version None)
Quarter: 2005Q2

REPORT INFORMATION
  Report Type: 
  Country: None (occurrence: None)
  Receive Date: 20050422
  Receipt Date: 20050329
  Transmission Date: 20051028
  Serious: Yes (Other)
  Sender: FDA-Public Use
  Company Number: JP-ROCHE-400152

PATIENT
  Age: 66 Year
  Sex: Female

DRUGS (7)
  1. PEGASYS [Suspect]
     Indication: HEPATITIS C
     Route: 058
     Dates: start: 20040913, end: 20040920
  2. PEGASYS [Suspect]
     Route: 058
     Dates: start: 20040927, end: 20041206
  3. KENACORT A [Suspect]
     Route: 030
     Dates: start: 20050124, end: 20050124
  4. NEO-MINOPHAGEN C [Concomitant]
     Route: 042
     Dates: start: 20041224
  5. CELESTAMINE TAB [Concomitant]
     Route: 048
     Dates: start: 20041230
  6. MYSLEE [Concomitant]
     Route: 048
     Dates: start: 20041230
  7. STRONGER NEO-MINOPHAGEN C [Concomitant]
     Dates: start: 20041224

REACTIONS (2)
  - OSTEOPOROSIS [None]
  - SPINAL COMPRESSION FRACTURE [None]
